FAERS Safety Report 4416815-X (Version None)
Quarter: 2004Q2

REPORT INFORMATION
  Report Type: 
  Country: None (occurrence: None)
  Receive Date: 20040628
  Receipt Date: 20040512
  Transmission Date: 20050107
  Serious: No
  Sender: FDA-Public Use
  Company Number: USA-2004-0015102

PATIENT
  Sex: Male

DRUGS (1)
  1. SPECTRACEF [Suspect]
     Indication: SKIN INFECTION
     Dosage: 200 MG, BID
     Dates: start: 20020101, end: 20020101

REACTIONS (1)
  - DIARRHOEA [None]
